FAERS Safety Report 5129641-3 (Version None)
Quarter: 2006Q4

REPORT INFORMATION
  Report Type: 
  Country: None (occurrence: None)
  Receive Date: 20061012
  Receipt Date: 20061002
  Transmission Date: 20070319
  Serious: Yes (Other)
  Sender: FDA-Public Use
  Company Number: 2006118689

PATIENT
  Age: 44 Year
  Sex: Female

DRUGS (4)
  1. ZOLOFT [Suspect]
     Dates: start: 20050301, end: 20060801
  2. LEXAPRO [Suspect]
     Indication: DEPRESSION
     Dosage: 10 MG (10 MG, 1 IN 1 D), ORAL
     Route: 048
     Dates: start: 20050301, end: 20050801
  3. SEROQUEL [Suspect]
     Dates: start: 20050301, end: 20060801
  4. ATENOLOL [Concomitant]

REACTIONS (5)
  - BIPOLAR DISORDER [None]
  - DIVORCED [None]
  - HALLUCINATION [None]
  - INSOMNIA [None]
  - PANIC ATTACK [None]
